FAERS Safety Report 21668385 (Version 1)
Quarter: 2022Q4

REPORT INFORMATION
  Report Type: Spontaneous
  Country: US (occurrence: US)
  Receive Date: 20221201
  Receipt Date: 20221201
  Transmission Date: 20230113
  Serious: Yes (Life-Threatening, Hospitalization)
  Sender: FDA-Public Use
  Company Number: US-AZURITY PHARMACEUTICALS, INC.-US-2022ARB002892

PATIENT
  Age: 57 Year
  Sex: Female

DRUGS (1)
  1. BACLOFEN [Suspect]
     Active Substance: BACLOFEN
     Indication: Muscle spasms
     Dosage: UNK

REACTIONS (6)
  - Toxicity to various agents [Unknown]
  - Overdose [Unknown]
  - Mental status changes [Recovering/Resolving]
  - Respiratory failure [Unknown]
  - Seizure [Unknown]
  - Acute kidney injury [Unknown]
